FAERS Safety Report 7826667-3 (Version None)
Quarter: 2011Q4

REPORT INFORMATION
  Report Type: 
  Country: None (occurrence: None)
  Receive Date: 20111020
  Receipt Date: 20111014
  Transmission Date: 20120403
  Serious: Yes (Death)
  Sender: FDA-Public Use
  Company Number: US-CELGENEUS-163-21880-11101714

PATIENT
  Sex: Female

DRUGS (9)
  1. REVLIMID [Suspect]
     Indication: MULTIPLE MYELOMA
     Dosage: 25 MILLIGRAM
     Route: 048
     Dates: start: 20061001
  2. REVLIMID [Suspect]
     Dosage: 15 MILLIGRAM
     Route: 048
     Dates: start: 20061101
  3. REVLIMID [Suspect]
     Dosage: 10-15MG
     Route: 048
     Dates: start: 20080901
  4. REVLIMID [Suspect]
     Dosage: 20 MILLIGRAM
     Route: 048
     Dates: start: 20090701
  5. COUMADIN [Concomitant]
     Route: 065
  6. REVLIMID [Suspect]
     Dosage: 25 MILLIGRAM
     Route: 048
     Dates: start: 20090801
  7. DEXAMETHASONE [Concomitant]
     Route: 065
  8. ZOMETA [Concomitant]
     Route: 065
  9. ZIAC [Concomitant]
     Route: 065

REACTIONS (1)
  - DEATH [None]
